FAERS Safety Report 14996359 (Version 2)
Quarter: 2019Q3

REPORT INFORMATION
  Report Type: Spontaneous
  Country: CA (occurrence: CA)
  Receive Date: 20180611
  Receipt Date: 20190730
  Transmission Date: 20191004
  Serious: Yes (Other)
  Sender: FDA-Public Use
  Company Number: CA-BAYER-2018-107248

PATIENT
  Age: 49 Year
  Sex: Female
  Weight: 58.6 kg

DRUGS (2)
  1. MISOPROSTOL. [Concomitant]
     Active Substance: MISOPROSTOL
     Dosage: UNK
     Dates: start: 20170206, end: 20170208
  2. MIRENA [Suspect]
     Active Substance: LEVONORGESTREL
     Dosage: 20 MCG/24HR, CONT
     Route: 015
     Dates: start: 20170206, end: 20180207

REACTIONS (8)
  - Labelled drug-disease interaction medication error [None]
  - Intraductal proliferative breast lesion [None]
  - Paget^s disease of nipple [None]
  - HER-2 positive breast cancer [None]
  - Metastases to lymph nodes [None]
  - Fibrocystic breast disease [None]
  - Invasive ductal breast carcinoma [None]
  - Breast hyperplasia [None]

NARRATIVE: CASE EVENT DATE: 20170425
